FAERS Safety Report 6596765-3 (Version None)
Quarter: 2010Q1

REPORT INFORMATION
  Report Type: 
  Country: None (occurrence: None)
  Receive Date: 20100212
  Receipt Date: 20100128
  Transmission Date: 20100710
  Serious: Yes (Other)
  Sender: FDA-Public Use
  Company Number: 006048

PATIENT
  Sex: Female
  Weight: 54.4 kg

DRUGS (2)
  1. KEPPRA [Suspect]
     Indication: CONVULSION
     Dosage: (750 MG BID ORAL), (375 MG QD ORAL), (750 MB QD ORAL), (750 MG QD ORAL)
     Route: 048
     Dates: start: 20080101
  2. DILANTIN [Concomitant]

REACTIONS (4)
  - ABASIA [None]
  - BLOOD PRESSURE DECREASED [None]
  - CONVULSION [None]
  - SOMNOLENCE [None]
